FAERS Safety Report 14559250 (Version 1)
Quarter: 2018Q1

REPORT INFORMATION
  Report Type: Spontaneous
  Country: US (occurrence: US)
  Receive Date: 20180220
  Receipt Date: 20180220
  Transmission Date: 20180509
  Serious: Yes (Hospitalization)
  Sender: FDA-Public Use
  Company Number: None

PATIENT
  Age: 64 Year
  Sex: Female
  Weight: 68.2 kg

DRUGS (22)
  1. EPCLUSA [Suspect]
     Active Substance: SOFOSBUVIR\VELPATASVIR
     Indication: HEPATITIS C
     Dosage: 400MG/100MG QD ORAL
     Route: 048
     Dates: start: 20170401, end: 20170623
  2. DULOXETINE. [Concomitant]
     Active Substance: DULOXETINE
  3. VALPROATE [Concomitant]
     Active Substance: VALPROIC ACID
  4. AMLODIPINE [Concomitant]
     Active Substance: AMLODIPINE BESYLATE
  5. NICOTINE TRANSDERMAL SYSTEM [Concomitant]
     Active Substance: NICOTINE
  6. TIZANIDINE. [Concomitant]
     Active Substance: TIZANIDINE
  7. METHADONE [Concomitant]
     Active Substance: METHADONE HYDROCHLORIDE
  8. LYRICA [Concomitant]
     Active Substance: PREGABALIN
  9. SODIEM CHLORIDE [Concomitant]
  10. ADVAIR HFA [Concomitant]
     Active Substance: FLUTICASONE PROPIONATE\SALMETEROL XINAFOATE
  11. CELEBREX [Concomitant]
     Active Substance: CELECOXIB
  12. PROAIR HFA [Concomitant]
     Active Substance: ALBUTEROL SULFATE
  13. SUBOXONE [Concomitant]
     Active Substance: BUPRENORPHINE HYDROCHLORIDE\NALOXONE HYDROCHLORIDE
  14. GABAPENTIN. [Concomitant]
     Active Substance: GABAPENTIN
  15. NALOXONE [Concomitant]
     Active Substance: NALOXONE
  16. DEPAKOTE [Concomitant]
     Active Substance: DIVALPROEX SODIUM
  17. CLONAZEPAM. [Concomitant]
     Active Substance: CLONAZEPAM
  18. CLONIDINE. [Concomitant]
     Active Substance: CLONIDINE
  19. NARCAN [Concomitant]
     Active Substance: NALOXONE HYDROCHLORIDE
  20. DIVALPROEX [Concomitant]
     Active Substance: DIVALPROEX SODIUM
  21. ATIVAN [Concomitant]
     Active Substance: LORAZEPAM
  22. ATROPINE. [Concomitant]
     Active Substance: ATROPINE

REACTIONS (1)
  - Seizure [None]

NARRATIVE: CASE EVENT DATE: 20170712
